FAERS Safety Report 4383144-2 (Version None)
Quarter: 2004Q2

REPORT INFORMATION
  Report Type: 
  Country: None (occurrence: None)
  Receive Date: 20040618
  Receipt Date: 20040607
  Transmission Date: 20050107
  Serious: Yes (Death)
  Sender: FDA-Public Use
  Company Number: US-JNJFOC-20040302983

PATIENT
  Age: 50 Year
  Sex: Female
  Weight: 97.977 kg

DRUGS (18)
  1. REMICADE [Suspect]
     Indication: RHEUMATOID ARTHRITIS
     Dosage: 300 MG, INTRAVENOUS
     Route: 042
     Dates: start: 20030808
  2. REMICADE [Suspect]
     Indication: RHEUMATOID ARTHRITIS
     Dosage: 300 MG, INTRAVENOUS
     Route: 042
     Dates: start: 20031013
  3. REMICADE [Suspect]
     Indication: RHEUMATOID ARTHRITIS
     Dosage: 300 MG, INTRAVENOUS
     Route: 042
     Dates: start: 20031209
  4. REMICADE [Suspect]
     Indication: RHEUMATOID ARTHRITIS
     Dosage: 300 MG, INTRAVENOUS
     Route: 042
     Dates: start: 20040203
  5. PREDNISONE TAB [Suspect]
     Indication: RHEUMATOID ARTHRITIS
     Dosage: VARIABLE DOSES
  6. METHOTREXATE [Suspect]
     Dosage: 25 MG, 1 IN 1 WEEK, SUBCUTANEOUS
     Route: 058
  7. PLAVIX [Concomitant]
  8. LEUCOVORIN CALCIUM [Concomitant]
  9. PHENOBARBITAL TAB [Concomitant]
  10. RANITIDINE [Concomitant]
  11. NAPROXEN [Concomitant]
  12. LASIX [Concomitant]
  13. POTASSIUM [Concomitant]
  14. NORCO (VICODIN) [Concomitant]
  15. ENBREL (ETANERCEPT) [Concomitant]
  16. MULTI-VITAMINS [Concomitant]
  17. MILK THISTLE (PLANT ALKALOIDS AND OTHER NATURAL PRODUCTS) [Concomitant]
  18. HYDROCODONE/APAP (HYDROCODONE) [Concomitant]

REACTIONS (24)
  - AORTIC ATHEROSCLEROSIS [None]
  - CARDIOMEGALY [None]
  - CHEST PAIN [None]
  - DIARRHOEA [None]
  - DISSEMINATED INTRAVASCULAR COAGULATION [None]
  - DYSPNOEA [None]
  - DYSPNOEA PAROXYSMAL NOCTURNAL [None]
  - HEPATIC NECROSIS [None]
  - HEPATOMEGALY [None]
  - HISTOPLASMOSIS DISSEMINATED [None]
  - HYPOTENSION [None]
  - MULTI-ORGAN FAILURE [None]
  - MYOCARDIAL INFARCTION [None]
  - OESOPHAGEAL CANDIDIASIS [None]
  - PULMONARY CONGESTION [None]
  - PULMONARY NECROSIS [None]
  - PULMONARY OEDEMA [None]
  - PYREXIA [None]
  - RENAL DISORDER [None]
  - RENAL FAILURE [None]
  - SEPTIC SHOCK [None]
  - SPLEEN CONGESTION [None]
  - SPLEEN DISORDER [None]
  - VASCULITIS [None]
